FAERS Safety Report 8469931-X (Version None)
Quarter: 2012Q2

REPORT INFORMATION
  Report Type: 
  Country: None (occurrence: None)
  Receive Date: 20120627
  Receipt Date: 20120614
  Transmission Date: 20120825
  Serious: Yes (Other)
  Sender: FDA-Public Use
  Company Number: BR-BIOGENIDEC-2010BI002892

PATIENT
  Age: 64 Year
  Sex: Female
  Weight: 60 kg

DRUGS (2)
  1. AVONEX [Suspect]
     Indication: MULTIPLE SCLEROSIS
     Route: 030
     Dates: start: 20000101
  2. AVONEX [Suspect]
     Route: 030
     Dates: start: 20000101

REACTIONS (12)
  - PYREXIA [None]
  - LOSS OF CONSCIOUSNESS [None]
  - HEADACHE [None]
  - ENCEPHALITIS [None]
  - DECREASED APPETITE [None]
  - MALAISE [None]
  - FATIGUE [None]
  - FEELING OF DESPAIR [None]
  - DIZZINESS [None]
  - GAIT DISTURBANCE [None]
  - SOMNOLENCE [None]
  - MOBILITY DECREASED [None]
